FAERS Safety Report 5068590-6 (Version None)
Quarter: 2006Q3

REPORT INFORMATION
  Report Type: 
  Country: None (occurrence: None)
  Receive Date: 20060802
  Receipt Date: 20051216
  Transmission Date: 20061208
  Serious: No
  Sender: FDA-Public Use
  Company Number: US-BRISTOL-MYERS SQUIBB COMPANY-13219381

PATIENT
  Age: 80 Year
  Sex: Male

DRUGS (8)
  1. COUMADIN [Suspect]
     Indication: ATRIAL FIBRILLATION
  2. LASIX [Concomitant]
  3. LISINOPRIL [Concomitant]
  4. LANOXIN [Concomitant]
  5. GLIPIZIDE [Concomitant]
  6. METFORMIN HYDROCHLORIDE [Concomitant]
  7. LEVOXYL [Concomitant]
  8. POTASSIUM [Concomitant]

REACTIONS (1)
  - INTERNATIONAL NORMALISED RATIO DECREASED [None]
